FAERS Safety Report 23107227 (Version 1)
Quarter: 2023Q4

REPORT INFORMATION
  Report Type: Spontaneous
  Country: US (occurrence: US)
  Receive Date: 20231026
  Receipt Date: 20231026
  Transmission Date: 20240110
  Serious: Yes (Hospitalization, Other)
  Sender: FDA-Public Use
  Company Number: US-HIKMA PHARMACEUTICALS USA INC.-US-H14001-23-66052

PATIENT
  Age: 55 Year
  Sex: Female

DRUGS (3)
  1. PREDNISONE [Suspect]
     Active Substance: PREDNISONE
     Indication: Pulmonary sarcoidosis
     Dosage: 10 MILLIGRAM, QD, LOW-DOSE
     Route: 065
  2. OXYGEN [Concomitant]
     Active Substance: OXYGEN
     Indication: Chronic respiratory failure
     Dosage: 3 LITER
     Route: 065
  3. TADALAFIL [Concomitant]
     Active Substance: TADALAFIL
     Indication: Pulmonary hypertension
     Dosage: UNKNOWN
     Route: 065

REACTIONS (2)
  - Respiratory failure [Recovered/Resolved]
  - Pneumonia legionella [Recovered/Resolved]
